FAERS Safety Report 10403020 (Version 1)
Quarter: 2014Q3

REPORT INFORMATION
  Report Type: Spontaneous
  Country: US (occurrence: None)
  Receive Date: 20140821
  Receipt Date: 20140821
  Transmission Date: 20150326
  Serious: Yes (Hospitalization)
  Sender: FDA-Public Use
  Company Number: None

PATIENT
  Age: 54 Year
  Sex: Female

DRUGS (1)
  1. HUMIRA [Suspect]
     Active Substance: ADALIMUMAB
     Indication: ARTHRITIS
     Route: 058
     Dates: start: 20140810, end: 20140810

REACTIONS (5)
  - Chest pain [None]
  - Gingival bleeding [None]
  - Pyrexia [None]
  - Malaise [None]
  - Weight decreased [None]

NARRATIVE: CASE EVENT DATE: 20140819
